FAERS Safety Report 9506539 (Version 2)
Quarter: 2013Q3

REPORT INFORMATION
  Report Type: Spontaneous
  Country: IT (occurrence: IT)
  Receive Date: 20130906
  Receipt Date: 20130913
  Transmission Date: 20140515
  Serious: Yes (Hospitalization)
  Sender: FDA-Public Use
  Company Number: PHHY2013IT098085

PATIENT
  Age: 88 Year
  Sex: Female

DRUGS (6)
  1. COTAREG [Suspect]
     Indication: HYPERTENSION
     Dosage: 1 DF, DAILY
     Route: 048
     Dates: start: 20110101, end: 20130803
  2. LASIX [Suspect]
     Indication: HYPERTENSION
     Dosage: 1 DF (25MG), DAILY
     Route: 048
     Dates: start: 20110101, end: 20130803
  3. PLAQUENIL [Concomitant]
     Dosage: UNK UKN, UNK
  4. DELTACORTENE [Concomitant]
     Dosage: UNK UKN, UNK
  5. CARDIRENE [Concomitant]
     Dosage: UNK UKN, UNK
  6. NEXUM [Concomitant]
     Dosage: UNK UKN, UNK

REACTIONS (2)
  - Confusional state [Recovered/Resolved]
  - Hyponatraemia [Recovered/Resolved]
